FAERS Safety Report 14577174 (Version 1)
Quarter: 2018Q1

REPORT INFORMATION
  Report Type: Spontaneous
  Country: US (occurrence: US)
  Receive Date: 20180227
  Receipt Date: 20180227
  Transmission Date: 20180509
  Serious: No
  Sender: FDA-Public Use
  Company Number: US-009507513-1802USA006968

PATIENT
  Age: 68 Year
  Sex: Female
  Weight: 99.77 kg

DRUGS (1)
  1. BELSOMRA [Suspect]
     Active Substance: SUVOREXANT
     Indication: SLEEP DISORDER THERAPY
     Dosage: 3 DF, HS, 3 DOSES OR 15 ML BEFORE BED
     Route: 048
     Dates: start: 20180209, end: 20180209

REACTIONS (4)
  - Erythema [Unknown]
  - Hangover [Unknown]
  - Somnolence [Unknown]
  - Head discomfort [Unknown]

NARRATIVE: CASE EVENT DATE: 20180209
